FAERS Safety Report 7671822-9 (Version None)
Quarter: 2011Q3

REPORT INFORMATION
  Report Type: 
  Country: None (occurrence: None)
  Receive Date: 20110725
  Receipt Date: 20110720
  Transmission Date: 20111222
  Serious: Yes (Other)
  Sender: FDA-Public Use
  Company Number: 2011029228

PATIENT
  Age: 74 Year
  Sex: Female
  Weight: 70.3075 kg

DRUGS (19)
  1. PREDNISONE [Concomitant]
  2. LORAZEPAM [Concomitant]
  3. PREBVACID (LANSOPRAZOLE) [Concomitant]
  4. POTASSIUM CHLORIDE [Concomitant]
  5. LISINOPRIL [Concomitant]
  6. ACTONEL [Concomitant]
  7. HEPARIN [Concomitant]
  8. MULTIVITAMIN (ACCOMIN MULTIVITAMIN) [Concomitant]
  9. QVAR [Concomitant]
  10. EVISTA [Concomitant]
  11. THEOPHYLLINE [Concomitant]
  12. ALBUTEROL [Concomitant]
  13. ZEMAIRA [Suspect]
     Indication: ALPHA-1 ANTI-TRYPSIN DEFICIENCY
     Dosage: 60 MG/KG 1X/WEEK, 1018 MG VIAL; 5.6 ML/MIN. INTRAVENOUS
     Route: 042
     Dates: start: 20070521
  14. ZEMAIRA [Suspect]
     Indication: OBSTRUCTIVE AIRWAYS DISORDER
     Dosage: 60 MG/KG 1X/WEEK, 1018 MG VIAL; 5.6 ML/MIN. INTRAVENOUS
     Route: 042
     Dates: start: 20070521
  15. KENALOG [Concomitant]
  16. FUROSEMIDE [Concomitant]
  17. PATADAY (OLOPATADINE HYDROCHLORIDE) [Concomitant]
  18. CALCIUM (CALCIUM) [Concomitant]
  19. THERATEARS (CARMELLOSE) [Concomitant]

REACTIONS (2)
  - URTICARIA [None]
  - KIDNEY INFECTION [None]
